FAERS Safety Report 5591085-8 (Version None)
Quarter: 2008Q1

REPORT INFORMATION
  Report Type: 
  Country: None (occurrence: None)
  Receive Date: 20080115
  Receipt Date: 20080111
  Transmission Date: 20080703
  Serious: Yes (Life-Threatening, Hospitalization, Other)
  Sender: FDA-Public Use
  Company Number: PHBS2007ES19049

PATIENT
  Age: 61 Year
  Sex: Male

DRUGS (1)
  1. BACLOFEN [Suspect]
     Indication: MUSCLE SPASTICITY
     Route: 037

REACTIONS (26)
  - ABNORMAL BEHAVIOUR [None]
  - ALTERED STATE OF CONSCIOUSNESS [None]
  - BACK PAIN [None]
  - CSF BACTERIA IDENTIFIED [None]
  - CSF GLUCOSE INCREASED [None]
  - CSF PROTEIN INCREASED [None]
  - DYSARTHRIA [None]
  - HEADACHE [None]
  - IRRITABILITY [None]
  - LEUKOCYTOSIS [None]
  - LIMB DISCOMFORT [None]
  - LUMBAR PUNCTURE ABNORMAL [None]
  - MENINGITIS BACTERIAL [None]
  - MENTAL DISORDER [None]
  - MOTOR DYSFUNCTION [None]
  - NERVOUS SYSTEM DISORDER [None]
  - NEUTROPHILIA [None]
  - NYSTAGMUS [None]
  - PERSONALITY CHANGE [None]
  - POLYMERASE CHAIN REACTION [None]
  - PURULENCE [None]
  - PYREXIA [None]
  - SUDDEN ONSET OF SLEEP [None]
  - VENTRICULAR DRAINAGE [None]
  - VENTRICULAR DYSFUNCTION [None]
  - VOMITING [None]
